FAERS Safety Report 25976442 (Version 1)
Quarter: 2025Q4

REPORT INFORMATION
  Report Type: Spontaneous
  Country: EU (occurrence: EU)
  Receive Date: 20251029
  Receipt Date: 20251029
  Transmission Date: 20260118
  Serious: Yes (Hospitalization, Other)
  Sender: BAUSCH AND LOMB
  Company Number: EU-AMGEN-DNKSP2025200328

PATIENT
  Age: 52 Year
  Sex: Male

DRUGS (24)
  1. BRODALUMAB [Suspect]
     Active Substance: BRODALUMAB
     Indication: Psoriatic arthropathy
     Route: 065
  2. BRODALUMAB [Suspect]
     Active Substance: BRODALUMAB
     Indication: Psoriasis
  3. BRODALUMAB [Suspect]
     Active Substance: BRODALUMAB
     Indication: Generalised pustular psoriasis
  4. ADALIMUMAB [Suspect]
     Active Substance: ADALIMUMAB
     Indication: Generalised pustular psoriasis
     Route: 065
  5. ADALIMUMAB [Suspect]
     Active Substance: ADALIMUMAB
     Indication: Psoriatic arthropathy
  6. ADALIMUMAB [Suspect]
     Active Substance: ADALIMUMAB
     Indication: Psoriasis
  7. METHOTREXATE [Suspect]
     Active Substance: METHOTREXATE
     Indication: Generalised pustular psoriasis
     Route: 065
  8. METHOTREXATE [Suspect]
     Active Substance: METHOTREXATE
     Indication: Psoriasis
  9. METHOTREXATE [Suspect]
     Active Substance: METHOTREXATE
     Indication: Psoriatic arthropathy
  10. ETANERCEPT [Suspect]
     Active Substance: ETANERCEPT
     Indication: Generalised pustular psoriasis
     Route: 065
  11. ETANERCEPT [Suspect]
     Active Substance: ETANERCEPT
     Indication: Psoriasis
  12. ETANERCEPT [Suspect]
     Active Substance: ETANERCEPT
     Indication: Psoriatic arthropathy
  13. INFLIXIMAB [Suspect]
     Active Substance: INFLIXIMAB
     Indication: Generalised pustular psoriasis
     Route: 065
  14. INFLIXIMAB [Suspect]
     Active Substance: INFLIXIMAB
     Indication: Psoriasis
  15. INFLIXIMAB [Suspect]
     Active Substance: INFLIXIMAB
     Indication: Psoriatic arthropathy
  16. GOLIMUMAB [Suspect]
     Active Substance: GOLIMUMAB
     Indication: Generalised pustular psoriasis
     Route: 065
  17. GOLIMUMAB [Suspect]
     Active Substance: GOLIMUMAB
     Indication: Psoriasis
  18. GOLIMUMAB [Suspect]
     Active Substance: GOLIMUMAB
     Indication: Psoriatic arthropathy
  19. SECUKINUMAB [Suspect]
     Active Substance: SECUKINUMAB
     Indication: Psoriatic arthropathy
     Route: 065
  20. SECUKINUMAB [Suspect]
     Active Substance: SECUKINUMAB
     Indication: Generalised pustular psoriasis
  21. SECUKINUMAB [Suspect]
     Active Substance: SECUKINUMAB
     Indication: Psoriasis
  22. APREMILAST [Suspect]
     Active Substance: APREMILAST
     Indication: Generalised pustular psoriasis
     Route: 065
  23. APREMILAST [Suspect]
     Active Substance: APREMILAST
     Indication: Psoriasis
  24. APREMILAST [Suspect]
     Active Substance: APREMILAST
     Indication: Psoriatic arthropathy

REACTIONS (5)
  - Generalised pustular psoriasis [Recovered/Resolved]
  - Psoriasis [Unknown]
  - Post inflammatory pigmentation change [Unknown]
  - Arthralgia [Unknown]
  - Product use in unapproved indication [Unknown]
